FAERS Safety Report 13060339 (Version 4)
Quarter: 2017Q3

REPORT INFORMATION
  Report Type: Report from Study
  Country: BE (occurrence: BE)
  Receive Date: 20161223
  Receipt Date: 20170814
  Transmission Date: 20171127
  Serious: Yes (Death, Hospitalization, Disabling, Other)
  Sender: FDA-Public Use
  Company Number: BE-CELGENEUS-BEL-2016063204

PATIENT
  Age: 84 Year
  Sex: Female

DRUGS (2)
  1. POMALIDOMIDE [Suspect]
     Active Substance: POMALIDOMIDE
     Indication: PLASMA CELL MYELOMA
     Dosage: 4MG
     Route: 048
     Dates: start: 20160525, end: 20160606
  2. DEXAMETHASONE. [Suspect]
     Active Substance: DEXAMETHASONE
     Indication: PLASMA CELL MYELOMA
     Dosage: 10MG
     Route: 065
     Dates: start: 20160525, end: 20160601

REACTIONS (7)
  - Plasma cell myeloma [Fatal]
  - General physical health deterioration [Recovered/Resolved]
  - Bone pain [Not Recovered/Not Resolved]
  - Hip fracture [Recovered/Resolved]
  - Neutropenia [Recovered/Resolved]
  - Humerus fracture [Not Recovered/Not Resolved]
  - Neutropenia [Recovered/Resolved]

NARRATIVE: CASE EVENT DATE: 20160603
